FAERS Safety Report 11859976 (Version 9)
Quarter: 2020Q2

REPORT INFORMATION
  Report Type: Spontaneous
  Country: US (occurrence: US)
  Receive Date: 20151222
  Receipt Date: 20200625
  Transmission Date: 20200713
  Serious: No
  Sender: FDA-Public Use
  Company Number: US-PFIZER INC-2015409683

PATIENT
  Age: 68 Year
  Sex: Female
  Weight: 68 kg

DRUGS (12)
  1. ZOLEDRONIC ACID [Concomitant]
     Active Substance: ZOLEDRONIC ACID
     Dosage: UNK (4)
     Dates: start: 20160808
  2. IBRANCE [Suspect]
     Active Substance: PALBOCICLIB
     Dosage: 100 MG, 1X/DAY (ONCE A DAY BY MOUTH FOR 21 DAYS)
     Route: 048
     Dates: start: 2015
  3. LETROZOLE. [Concomitant]
     Active Substance: LETROZOLE
     Indication: BREAST CANCER FEMALE
     Dosage: 2.5 MG, DAILY
     Dates: start: 20150728
  4. GRANIX [Concomitant]
     Active Substance: TBO-FILGRASTIM
     Dosage: UNK (480)
     Dates: start: 20160920
  5. IBRANCE [Suspect]
     Active Substance: PALBOCICLIB
     Indication: BREAST CANCER METASTATIC
     Dosage: UNK, CYCLIC (21 DAYS ON 7 DAYS OFF, DAILY)
     Dates: start: 20150728
  6. ZOLEDRONIC ACID [Concomitant]
     Active Substance: ZOLEDRONIC ACID
     Dosage: UNK (4)
     Dates: start: 20161010
  7. IBRANCE [Suspect]
     Active Substance: PALBOCICLIB
     Dosage: 125 MG, CYCLIC (21 DAYS THEN OFF FOR 7 DAYS)
     Dates: start: 20150922
  8. ZOLEDRONIC ACID [Concomitant]
     Active Substance: ZOLEDRONIC ACID
     Dosage: UNK (4)
     Dates: start: 20160912
  9. VITAMIN B12 [Concomitant]
     Active Substance: CYANOCOBALAMIN
     Dosage: UNK, 1000
     Dates: start: 20160725
  10. GRANIX [Concomitant]
     Active Substance: TBO-FILGRASTIM
     Dosage: UNK (480)
     Dates: start: 20160919
  11. GRANIX [Concomitant]
     Active Substance: TBO-FILGRASTIM
     Dosage: UNK (480)
     Dates: start: 20161010
  12. GRANIX [Concomitant]
     Active Substance: TBO-FILGRASTIM
     Dosage: UNK, AS NEEDED (PRN)

REACTIONS (7)
  - Neoplasm progression [Unknown]
  - Poor quality sleep [Unknown]
  - Vitamin B12 decreased [Unknown]
  - Immune system disorder [Unknown]
  - White blood cell count decreased [Recovered/Resolved]
  - Cognitive disorder [Unknown]
  - Hypoacusis [Unknown]

NARRATIVE: CASE EVENT DATE: 20160912
